FAERS Safety Report 4431718-2 (Version None)
Quarter: 2004Q3

REPORT INFORMATION
  Report Type: 
  Country: None (occurrence: None)
  Receive Date: 20040820
  Receipt Date: 20040820
  Transmission Date: 20050211
  Serious: Yes (Other)
  Sender: FDA-Public Use
  Company Number: None

PATIENT

DRUGS (2)
  1. PROMETHAZINE HCL [Suspect]
     Indication: NAUSEA
     Dosage: 25 MG
  2. PROMETHAZINE HCL [Suspect]
     Indication: VOMITING
     Dosage: 25 MG

REACTIONS (1)
  - PHARMACEUTICAL PRODUCT COMPLAINT [None]
